FAERS Safety Report 5424788-6 (Version None)
Quarter: 2007Q3

REPORT INFORMATION
  Report Type: 
  Country: None (occurrence: None)
  Receive Date: 20070725
  Receipt Date: 20070209
  Transmission Date: 20080115
  Serious: Yes (Other)
  Sender: FDA-Public Use
  Company Number: USA-2007-0026469

PATIENT
  Age: 50 Year
  Sex: Male

DRUGS (4)
  1. MORPHINE SULFATE [Suspect]
     Indication: DRUG ABUSER
  2. DIAZEPEM (DIAZEPEM) [Suspect]
     Indication: DRUG ABUSER
  3. DICYCLOVERINE (DICYCLOVERINE) [Suspect]
     Indication: DRUG ABUSER
  4. DILAUDID [Suspect]
     Indication: DRUG ABUSER

REACTIONS (1)
  - DRUG ABUSER [None]
